FAERS Safety Report 8660732 (Version 3)
Quarter: 2013Q4

REPORT INFORMATION
  Report Type: Report from Study
  Country: FR (occurrence: BR)
  Receive Date: 20120711
  Receipt Date: 20131101
  Transmission Date: 20140711
  Serious: Yes (Hospitalization)
  Sender: FDA-Public Use
  Company Number: FR-009507513-1104FRA00066

PATIENT
  Sex: Male
  Weight: 62 kg

DRUGS (8)
  1. RALTEGRAVIR POTASSIUM [Suspect]
     Indication: HIV INFECTION
     Dosage: 1600 MG, QD
     Route: 048
     Dates: start: 20110328
  2. RIFAMPIN [Concomitant]
     Indication: TUBERCULOSIS
     Dosage: 600 MG, QD
     Route: 048
     Dates: start: 20110210
  3. ISONIAZID [Concomitant]
     Indication: TUBERCULOSIS
     Dosage: 300 MG, QD
     Route: 048
     Dates: start: 20110210
  4. PYRAZINAMIDE [Concomitant]
     Indication: TUBERCULOSIS
     Dosage: 1200 MG, QD
     Route: 048
     Dates: start: 20110210
  5. ETHAMBUTOL HYDROCHLORIDE [Concomitant]
     Indication: TUBERCULOSIS
     Dosage: 1100 MG, QD
     Route: 048
     Dates: start: 20110210
  6. VIREAD [Suspect]
     Indication: HIV INFECTION
     Dosage: 300 MG, QD
     Route: 048
     Dates: start: 20110328
  7. EPIVIR [Suspect]
     Indication: HIV INFECTION
     Dosage: 300 MG, QD
     Route: 048
     Dates: start: 20110328
  8. PYRIDOXINE [Concomitant]
     Dosage: 40 MG, QD
     Dates: start: 20110301

REACTIONS (1)
  - Immune reconstitution inflammatory syndrome [Recovered/Resolved]
